FAERS Safety Report 6074389-4 (Version None)
Quarter: 2009Q1

REPORT INFORMATION
  Report Type: 
  Country: None (occurrence: None)
  Receive Date: 20090206
  Receipt Date: 20090128
  Transmission Date: 20090719
  Serious: Yes (Disabling)
  Sender: FDA-Public Use
  Company Number: 2009-JP000456

PATIENT
  Age: 63 Year
  Sex: Male

DRUGS (3)
  1. PROGRAF [Suspect]
     Indication: RENAL TRANSPLANT
     Dosage: ORAL
     Route: 048
     Dates: start: 20041001
  2. MYCOPHENOATE MOFETIL (MYCOPHENOLATE MOFETIL) [Concomitant]
  3. PREDNISOLONE [Concomitant]

REACTIONS (5)
  - CATARACT [None]
  - COLOUR BLINDNESS [None]
  - MACULOPATHY [None]
  - PHOTOPHOBIA [None]
  - SCOTOMA [None]
